FAERS Safety Report 19087113 (Version 1)
Quarter: 2021Q2

REPORT INFORMATION
  Report Type: Report from Study
  Country: GB (occurrence: GB)
  Receive Date: 20210402
  Receipt Date: 20210402
  Transmission Date: 20210717
  Serious: Yes (Hospitalization)
  Sender: FDA-Public Use
  Company Number: GB-ACCORD-221442

PATIENT
  Age: 82 Year
  Sex: Female
  Weight: 72.9 kg

DRUGS (22)
  1. SODIUM BICARBONATE. [Concomitant]
     Active Substance: SODIUM BICARBONATE
     Route: 048
     Dates: start: 2002
  2. ACETYLSALICYLIC ACID [Concomitant]
     Active Substance: ASPIRIN
     Route: 048
     Dates: start: 2002, end: 20210301
  3. DARBEPOETIN ALFA [Suspect]
     Active Substance: DARBEPOETIN ALFA
     Indication: NEPHROGENIC ANAEMIA
     Dosage: UNK
     Dates: start: 20190129
  4. BISOPROLOL [Suspect]
     Active Substance: BISOPROLOL
     Indication: PRODUCT USED FOR UNKNOWN INDICATION
     Dosage: 5 MG
     Route: 048
     Dates: start: 20210227
  5. OMEPRAZOLE. [Concomitant]
     Active Substance: OMEPRAZOLE
     Route: 048
     Dates: start: 1993
  6. SIMVASTATIN. [Concomitant]
     Active Substance: SIMVASTATIN
     Route: 048
     Dates: start: 2002
  7. HYDROCHLOROTHIAZIDE. [Suspect]
     Active Substance: HYDROCHLOROTHIAZIDE
     Indication: HYPERTENSION
     Route: 048
     Dates: start: 2001, end: 20210218
  8. DARBEPOETIN ALFA [Suspect]
     Active Substance: DARBEPOETIN ALFA
     Indication: NEPHROGENIC ANAEMIA
     Dates: start: 20190129
  9. DIHYDROCODEINE BITARTRATE/PARACETAMOL [Concomitant]
     Active Substance: ACETAMINOPHEN\DIHYDROCODEINE BITARTRATE
     Route: 048
     Dates: start: 2000, end: 20210217
  10. PFIZER?BIONTECH COVID?19 VACCINE [Concomitant]
     Active Substance: TOZINAMERAN
     Route: 030
     Dates: start: 20201222, end: 20201222
  11. BISOPROLOL [Suspect]
     Active Substance: BISOPROLOL
     Indication: PRODUCT USED FOR UNKNOWN INDICATION
     Dosage: 10 MG
     Route: 048
     Dates: start: 20190403, end: 20210226
  12. NAPROXEN. [Concomitant]
     Active Substance: NAPROXEN
     Route: 048
     Dates: start: 20200731, end: 20210217
  13. BENZBROMARONE [Concomitant]
     Active Substance: BENZBROMARONE
     Route: 048
     Dates: start: 20201111
  14. BETAHISTINE [Concomitant]
     Active Substance: BETAHISTINE
     Route: 048
     Dates: start: 1982
  15. DOXAZOSIN [Suspect]
     Active Substance: DOXAZOSIN MESYLATE
     Indication: PRODUCT USED FOR UNKNOWN INDICATION
     Dosage: 8 MG
     Route: 048
     Dates: start: 20190805, end: 20210226
  16. DAPRODUSTAT [Suspect]
     Active Substance: DAPRODUSTAT
     Indication: NEPHROGENIC ANAEMIA
     Dates: start: 20190129
  17. CEFALEXIN [Concomitant]
     Active Substance: CEPHALEXIN
     Route: 048
     Dates: start: 20201231, end: 20210106
  18. IRBESARTAN. [Suspect]
     Active Substance: IRBESARTAN
     Indication: PRODUCT USED FOR UNKNOWN INDICATION
     Dosage: 75 MG
     Route: 048
     Dates: start: 20210224, end: 20210226
  19. IRBESARTAN. [Suspect]
     Active Substance: IRBESARTAN
     Indication: HYPERTENSION
     Dosage: 75 MG
     Route: 048
     Dates: start: 2001, end: 20210218
  20. BACTROBAN [Concomitant]
     Active Substance: MUPIROCIN\MUPIROCIN CALCIUM
     Route: 061
     Dates: start: 20190329
  21. FUCIDIN [Concomitant]
     Active Substance: FUSIDATE SODIUM
     Route: 061
     Dates: start: 20200819
  22. LEVOTHYROXINE. [Concomitant]
     Active Substance: LEVOTHYROXINE
     Route: 048
     Dates: start: 1983

REACTIONS (2)
  - Mobility decreased [Recovering/Resolving]
  - Renal impairment [Recovered/Resolved]

NARRATIVE: CASE EVENT DATE: 20210118
